FAERS Safety Report 13717039 (Version 1)
Quarter: 2017Q3

REPORT INFORMATION
  Report Type: Spontaneous
  Country: US (occurrence: US)
  Receive Date: 20170704
  Receipt Date: 20170704
  Transmission Date: 20171127
  Serious: Yes (Disabling)
  Sender: FDA-Public Use
  Company Number: None

PATIENT
  Age: 33 Year
  Sex: Male
  Weight: 85.5 kg

DRUGS (1)
  1. AZITHROMYACIN [Suspect]
     Active Substance: AZITHROMYCIN
     Indication: SINUSITIS
     Dosage: ?          OTHER STRENGTH:MG;QUANTITY:4 TABLET(S);?
     Route: 048
     Dates: start: 20120615, end: 20120615

REACTIONS (3)
  - Nausea [None]
  - Dizziness [None]
  - Feeling abnormal [None]

NARRATIVE: CASE EVENT DATE: 20120728
